FAERS Safety Report 10611565 (Version 6)
Quarter: 2015Q4

REPORT INFORMATION
  Report Type: Report from Study
  Country: JP (occurrence: JP)
  Receive Date: 20141126
  Receipt Date: 20151028
  Transmission Date: 20160304
  Serious: Yes (Other)
  Sender: FDA-Public Use
  Company Number: JP-JNJFOC-20141115527

PATIENT
  Age: 76 Year
  Sex: Male
  Weight: 54 kg

DRUGS (8)
  1. URSO [Concomitant]
     Active Substance: URSODIOL
     Indication: CHRONIC HEPATITIS C
     Route: 048
     Dates: start: 20140701
  2. SELBEX [Concomitant]
     Active Substance: TEPRENONE
     Indication: OESOPHAGITIS
     Route: 048
     Dates: start: 20140701
  3. TAGAMET [Concomitant]
     Active Substance: CIMETIDINE
     Indication: OESOPHAGITIS
     Route: 048
     Dates: start: 20140701
  4. SOVRIAD [Suspect]
     Active Substance: SIMEPREVIR
     Indication: CHRONIC HEPATITIS C
     Route: 048
     Dates: start: 20140701, end: 20140922
  5. RIBAVIRIN. [Suspect]
     Active Substance: RIBAVIRIN
     Indication: CHRONIC HEPATITIS C
     Route: 048
     Dates: start: 20140701, end: 20141209
  6. WYPAX [Concomitant]
     Active Substance: LORAZEPAM
     Indication: NEUROSIS
     Route: 048
     Dates: start: 20140701
  7. PEGASYS [Suspect]
     Active Substance: PEGINTERFERON ALFA-2A
     Indication: CHRONIC HEPATITIS C
     Route: 058
     Dates: start: 20140701, end: 20140722
  8. PEGASYS [Suspect]
     Active Substance: PEGINTERFERON ALFA-2A
     Indication: CHRONIC HEPATITIS C
     Route: 058
     Dates: start: 20140729, end: 20141209

REACTIONS (1)
  - White blood cell count decreased [Recovering/Resolving]

NARRATIVE: CASE EVENT DATE: 20140729
